FAERS Safety Report 11567073 (Version 2)
Quarter: 2015Q4

REPORT INFORMATION
  Report Type: Spontaneous
  Country: US (occurrence: US)
  Receive Date: 20150916
  Receipt Date: 20151104
  Transmission Date: 20160304
  Serious: No
  Sender: FDA-Public Use
  Company Number: US-ELI_LILLY_AND_COMPANY-US200907000937

PATIENT
  Sex: Female
  Weight: 56.69 kg

DRUGS (3)
  1. FORTEO [Suspect]
     Active Substance: TERIPARATIDE
     Indication: OSTEOPOROSIS
     Dosage: 20 UG, DAILY (1/D)
     Dates: start: 20090313
  2. FORTEO [Suspect]
     Active Substance: TERIPARATIDE
     Dosage: 20 UG, DAILY (1/D)
  3. CORTISONE [Concomitant]
     Active Substance: CORTISONE\HYDROCORTISONE

REACTIONS (8)
  - Eye disorder [Unknown]
  - Arthralgia [Unknown]
  - Mental impairment [Unknown]
  - Swelling face [Unknown]
  - Weight increased [Unknown]
  - Fear [Unknown]
  - Visual acuity reduced [Unknown]
  - Ligament operation [Unknown]
